FAERS Safety Report 9969562 (Version 2)
Quarter: 2014Q1

REPORT INFORMATION
  Report Type: Spontaneous
  Country: TR (occurrence: TR)
  Receive Date: 20140306
  Receipt Date: 20140306
  Transmission Date: 20141002
  Serious: Yes (Other)
  Sender: FDA-Public Use
  Company Number: TR-AMGEN-TURSP2013000594

PATIENT
  Age: 21 Year
  Sex: Female

DRUGS (3)
  1. ENBREL [Suspect]
     Indication: ANKYLOSING SPONDYLITIS
     Dosage: 50 MG, WEEKLY
     Route: 058
     Dates: start: 201210, end: 20121213
  2. ENBREL [Suspect]
     Dosage: 50 MG, WEEKLY
     Route: 058
     Dates: end: 20130215
  3. ENBREL [Suspect]
     Dosage: 50 MG, QWK
     Route: 058

REACTIONS (9)
  - Familial mediterranean fever [Not Recovered/Not Resolved]
  - Premature delivery [Unknown]
  - Asthma [Not Recovered/Not Resolved]
  - Skin disorder [Not Recovered/Not Resolved]
  - Fear [Not Recovered/Not Resolved]
  - Nasopharyngitis [Not Recovered/Not Resolved]
  - Influenza [Unknown]
  - Upper respiratory tract infection [Not Recovered/Not Resolved]
  - Injection site pain [Not Recovered/Not Resolved]
